FAERS Safety Report 20061781 (Version 1)
Quarter: 2021Q4

REPORT INFORMATION
  Report Type: Report from Study
  Country: CA (occurrence: CA)
  Receive Date: 20211112
  Receipt Date: 20211112
  Transmission Date: 20220303
  Serious: Yes (Hospitalization, Other)
  Sender: FDA-Public Use
  Company Number: CA-JNJFOC-20200947762

PATIENT
  Age: 3 Decade
  Sex: Male
  Weight: 99 kg

DRUGS (6)
  1. REMICADE [Suspect]
     Active Substance: INFLIXIMAB
     Indication: Crohn^s disease
     Dosage: THERAPY START DATE ALSO REPORTED ON 11-MAR-2008
     Route: 042
     Dates: start: 200801
  2. REMICADE [Suspect]
     Active Substance: INFLIXIMAB
     Route: 042
  3. REMICADE [Suspect]
     Active Substance: INFLIXIMAB
     Route: 042
  4. REMICADE [Suspect]
     Active Substance: INFLIXIMAB
     Route: 042
     Dates: start: 20201019
  5. REMICADE [Suspect]
     Active Substance: INFLIXIMAB
     Dosage: LAST INFUSION ON 16-MAY-2021
     Route: 042
     Dates: start: 20201130
  6. METHOTREXATE [Suspect]
     Active Substance: METHOTREXATE
     Indication: Product used for unknown indication
     Route: 065

REACTIONS (14)
  - Large intestine infection [Unknown]
  - Anal abscess [Unknown]
  - Crohn^s disease [Unknown]
  - Staphylococcal abscess [Unknown]
  - Vitamin B12 deficiency [Unknown]
  - Faeces soft [Unknown]
  - Fistula discharge [Unknown]
  - Drug intolerance [Unknown]
  - Product dose omission issue [Unknown]
  - Tachyphylaxis [Unknown]
  - Blood bilirubin increased [Unknown]
  - Insomnia [Not Recovered/Not Resolved]
  - Bacterial disease carrier [Unknown]
  - Drug level decreased [Unknown]

NARRATIVE: CASE EVENT DATE: 20130101
